FAERS Safety Report 11127573 (Version 7)
Quarter: 2015Q3

REPORT INFORMATION
  Report Type: Spontaneous
  Country: US (occurrence: US)
  Receive Date: 20150521
  Receipt Date: 20150828
  Transmission Date: 20151125
  Serious: Yes (Other)
  Sender: FDA-Public Use
  Company Number: US-TEVA-563673ACC

PATIENT
  Age: 25 Year
  Sex: Female
  Weight: 47.22 kg

DRUGS (1)
  1. TAKE ACTION [Suspect]
     Active Substance: LEVONORGESTREL
     Indication: POST COITAL CONTRACEPTION
     Dosage: 1.5 MILLIGRAM DAILY;
     Route: 048
     Dates: start: 201504, end: 201504

REACTIONS (12)
  - Menstruation irregular [Not Recovered/Not Resolved]
  - Menstruation irregular [Recovered/Resolved]
  - Nausea [Recovered/Resolved]
  - Pregnancy after post coital contraception [Unknown]
  - Feeding disorder [Recovered/Resolved]
  - Breast tenderness [Not Recovered/Not Resolved]
  - Muscle spasms [Recovered/Resolved]
  - Decreased appetite [Unknown]
  - Haemorrhage [Unknown]
  - Dysmenorrhoea [Not Recovered/Not Resolved]
  - Abortion induced [Recovered/Resolved]
  - Abdominal pain lower [Not Recovered/Not Resolved]

NARRATIVE: CASE EVENT DATE: 20150508
